FAERS Safety Report 25889826 (Version 2)
Quarter: 2025Q4

REPORT INFORMATION
  Report Type: Report from Study
  Country: US (occurrence: US)
  Receive Date: 20251007
  Receipt Date: 20251023
  Transmission Date: 20260118
  Serious: Yes (Hospitalization)
  Sender: CSL BEHRING
  Company Number: US-BEH-2025220335

PATIENT
  Age: 66 Year
  Sex: Female
  Weight: 68.934 kg

DRUGS (1)
  1. ZEMAIRA [Suspect]
     Active Substance: .ALPHA.1-PROTEINASE INHIBITOR HUMAN
     Indication: Alpha-1 antitrypsin deficiency
     Dosage: UNK UNK, QW
     Route: 042

REACTIONS (2)
  - Haematological infection [Unknown]
  - Device related infection [Unknown]

NARRATIVE: CASE EVENT DATE: 20250919
